FAERS Safety Report 4279850-0 (Version None)
Quarter: 2004Q1

REPORT INFORMATION
  Report Type: 
  Country: None (occurrence: None)
  Receive Date: 20040126
  Receipt Date: 20040121
  Transmission Date: 20041129
  Serious: Yes (Hospitalization)
  Sender: FDA-Public Use
  Company Number: ENT 2004-0011

PATIENT
  Age: 75 Year
  Sex: Female

DRUGS (1)
  1. COMTAN [Suspect]
     Dosage: ORAL
     Route: 048

REACTIONS (2)
  - DIARRHOEA [None]
  - WEIGHT DECREASED [None]
